FAERS Safety Report 22055767 (Version 1)
Quarter: 2023Q1

REPORT INFORMATION
  Report Type: Spontaneous
  Country: US (occurrence: US)
  Receive Date: 20230302
  Receipt Date: 20230302
  Transmission Date: 20230417
  Serious: Yes (Hospitalization)
  Sender: FDA-Public Use
  Company Number: US-FreseniusKabi-FK202302607

PATIENT

DRUGS (1)
  1. CALCIUM GLUCONATE [Suspect]
     Active Substance: CALCIUM GLUCONATE
     Indication: Hypocalcaemia
     Dosage: PERIPHERAL IV PLACED IN THE RIGHT ANTECUBITAL FOSSA
     Route: 042

REACTIONS (2)
  - Peripheral venous disease [Unknown]
  - Cutaneous calcification [Unknown]
